FAERS Safety Report 16024897 (Version 2)
Quarter: 2019Q1

REPORT INFORMATION
  Report Type: Spontaneous
  Country: HU (occurrence: HU)
  Receive Date: 20190301
  Receipt Date: 20190325
  Transmission Date: 20190418
  Serious: Yes (Hospitalization)
  Sender: FDA-Public Use
  Company Number: HU-PFIZER INC-2019057253

PATIENT
  Age: 48 Year
  Sex: Female

DRUGS (12)
  1. LYRICA [Suspect]
     Active Substance: PREGABALIN
     Indication: RADICULOPATHY
     Dosage: 75 MG, 2X/DAY (MORNING AND EVENING)
     Dates: start: 20190122, end: 20190125
  2. LYRICA [Suspect]
     Active Substance: PREGABALIN
     Indication: NEURALGIA
  3. TEPERIN EP [Concomitant]
     Indication: PAIN
  4. ALGOPYRIN [METAMIZOLE SODIUM] [Concomitant]
     Indication: PAIN
  5. TEPERIN EP [Concomitant]
     Indication: RADICULOPATHY
     Dosage: 50 MG, UNK (IN THE EVENING)
     Dates: start: 20190121
  6. ALGOPYRIN [METAMIZOLE SODIUM] [Concomitant]
     Indication: RADICULOPATHY
     Dosage: 1 DF,  (1 AMP, INFUSION)
     Dates: start: 20190121
  7. SEDUXEN [DIAZEPAM] [Concomitant]
     Indication: PAIN
  8. RELAXIL-G [Concomitant]
     Indication: PAIN
  9. SEDUXEN [DIAZEPAM] [Concomitant]
     Indication: RADICULOPATHY
     Dosage: 0.5 DF, UNK (1/2 AMP, INFUSION)
     Dates: start: 20190121
  10. SEDUXEN [DIAZEPAM] [Concomitant]
     Indication: NEURALGIA
  11. LYRICA [Suspect]
     Active Substance: PREGABALIN
     Indication: PAIN
  12. RELAXIL-G [Concomitant]
     Indication: RADICULOPATHY
     Dosage: 1 DF, UNK (1 AMP, INFUSION)
     Dates: start: 20190121

REACTIONS (1)
  - Dermatitis contact [Recovered/Resolved]

NARRATIVE: CASE EVENT DATE: 20190123
